FAERS Safety Report 8249083-1 (Version None)
Quarter: 2012Q2

REPORT INFORMATION
  Report Type: 
  Country: None (occurrence: None)
  Receive Date: 20120402
  Receipt Date: 20120327
  Transmission Date: 20120825
  Serious: No
  Sender: FDA-Public Use
  Company Number: US-PFIZER INC-2012079212

PATIENT
  Sex: Male
  Weight: 91 kg

DRUGS (3)
  1. VITAMIN TAB [Concomitant]
     Dosage: UNK
  2. TRAMADOL [Concomitant]
     Indication: BACK PAIN
     Dosage: UNK, AS NEEDED
  3. CELEBREX [Suspect]
     Indication: BACK PAIN
     Dosage: 200 MG, 2X/DAY

REACTIONS (2)
  - ABDOMINAL DISCOMFORT [None]
  - HYPOAESTHESIA [None]
